FAERS Safety Report 20993349 (Version 1)
Quarter: 2022Q2

REPORT INFORMATION
  Report Type: Spontaneous
  Country: US (occurrence: US)
  Receive Date: 20220622
  Receipt Date: 20220622
  Transmission Date: 20220720
  Serious: Yes (Other)
  Sender: FDA-Public Use
  Company Number: US-HORIZON THERAPEUTICS-HZN-2022-004548

PATIENT

DRUGS (14)
  1. RAYOS [Suspect]
     Active Substance: PREDNISONE
     Indication: Mesenteric panniculitis
     Dosage: BELOW 20 MG
     Route: 065
  2. RAYOS [Suspect]
     Active Substance: PREDNISONE
     Dosage: 12.5 MG, QD
     Route: 065
  3. RAYOS [Suspect]
     Active Substance: PREDNISONE
     Dosage: 15 TO 30 MG DAILY
     Route: 065
  4. TAMOXIFEN [Concomitant]
     Active Substance: TAMOXIFEN
     Indication: Mesenteric panniculitis
  5. AZATHIOPRINE [Concomitant]
     Active Substance: AZATHIOPRINE
     Indication: Mesenteric panniculitis
  6. COLCHICINE [Concomitant]
     Active Substance: COLCHICINE
     Indication: Mesenteric panniculitis
  7. METHOTREXATE [Concomitant]
     Active Substance: METHOTREXATE
     Indication: Mesenteric panniculitis
  8. CYCLOPHOSPHAMIDE [Concomitant]
     Active Substance: CYCLOPHOSPHAMIDE
     Indication: Mesenteric panniculitis
  9. INFLIXIMAB [Concomitant]
     Active Substance: INFLIXIMAB
     Indication: Mesenteric panniculitis
     Dosage: 5 MG/KG (0, 2, 6 WEEKS INTERVALS, FOLLOWED BY EVERY 8 WEEKS )
     Route: 042
  10. RITUXIMAB [Concomitant]
     Active Substance: RITUXIMAB
     Indication: Mesenteric panniculitis
     Dosage: UNK, CYCLIC (6 CYCLES)
  11. DOXORUBICIN HYDROCHLORIDE [Concomitant]
     Active Substance: DOXORUBICIN HYDROCHLORIDE
     Indication: Mesenteric panniculitis
     Dosage: UNK, CYCLIC (6 CYCLES)
  12. VINCRISTINE [Concomitant]
     Active Substance: VINCRISTINE
     Indication: Mesenteric panniculitis
     Dosage: UNK, CYCLIC (6 CYCLES)
  13. USTEKINUMAB [Concomitant]
     Active Substance: USTEKINUMAB
     Indication: Mesenteric panniculitis
     Dosage: 520 MG
     Route: 042
  14. USTEKINUMAB [Concomitant]
     Active Substance: USTEKINUMAB
     Dosage: 90 MG (EVERY 8 WEEKS)
     Route: 058

REACTIONS (4)
  - Non-alcoholic steatohepatitis [Unknown]
  - Cataract [Unknown]
  - Diabetes mellitus [Unknown]
  - Osteoporosis [Unknown]
